FAERS Safety Report 12856680 (Version 1)
Quarter: 2016Q4

REPORT INFORMATION
  Report Type: Spontaneous
  Country: US (occurrence: US)
  Receive Date: 20161018
  Receipt Date: 20161018
  Transmission Date: 20170207
  Serious: No
  Sender: FDA-Public Use
  Company Number: US-TEVA-695616ACC

PATIENT
  Sex: Female

DRUGS (2)
  1. TAKE ACTION [Suspect]
     Active Substance: LEVONORGESTREL
     Indication: POST COITAL CONTRACEPTION
     Dates: start: 20160916, end: 20160916
  2. TAKE ACTION [Suspect]
     Active Substance: LEVONORGESTREL
     Dates: start: 20160917, end: 20160917

REACTIONS (3)
  - Vaginal haemorrhage [Not Recovered/Not Resolved]
  - Dysmenorrhoea [Not Recovered/Not Resolved]
  - Intentional product misuse [Unknown]
